FAERS Safety Report 8028884-9 (Version None)
Quarter: 2012Q1

REPORT INFORMATION
  Report Type: 
  Country: None (occurrence: None)
  Receive Date: 20120106
  Receipt Date: 20111228
  Transmission Date: 20120608
  Serious: Yes (Life-Threatening, Hospitalization)
  Sender: FDA-Public Use
  Company Number: JP-GLAXOSMITHKLINE-B0721388A

PATIENT
  Age: 7 Year
  Sex: Female
  Weight: 15 kg

DRUGS (11)
  1. LAMICTAL [Suspect]
     Indication: EPILEPSY
     Dosage: 2MG PER DAY
     Route: 048
     Dates: start: 20100205, end: 20100218
  2. LAMICTAL [Suspect]
     Route: 048
     Dates: start: 20100611, end: 20100714
  3. LAMICTAL [Suspect]
     Dosage: 16MG PER DAY
     Route: 048
     Dates: start: 20100420, end: 20100513
  4. LAMICTAL [Suspect]
     Dosage: 20MG PER DAY
     Route: 048
     Dates: start: 20100514, end: 20100610
  5. CLONAZEPAM [Concomitant]
     Indication: EPILEPSY
     Dosage: .4MG PER DAY
     Route: 048
     Dates: start: 20100730, end: 20100803
  6. LAMICTAL [Suspect]
     Dosage: 8MG PER DAY
     Route: 048
     Dates: start: 20100309, end: 20100329
  7. LAMICTAL [Suspect]
     Dosage: 4MG PER DAY
     Route: 048
     Dates: start: 20100219, end: 20100308
  8. LAMICTAL [Suspect]
     Dosage: 12MG PER DAY
     Route: 048
     Dates: start: 20100330, end: 20100419
  9. VALPROATE SODIUM [Suspect]
     Indication: EPILEPSY
     Dosage: 700MG PER DAY
     Route: 048
     Dates: start: 20090821, end: 20100803
  10. TOPIRAMATE [Concomitant]
     Indication: EPILEPSY
     Route: 048
     Dates: start: 20090218, end: 20100528
  11. MYSTAN [Concomitant]
     Indication: EPILEPSY
     Dosage: 3MG PER DAY
     Route: 048
     Dates: start: 20100816, end: 20100819

REACTIONS (14)
  - CARDIAC FAILURE [None]
  - VENTRICULAR FIBRILLATION [None]
  - ERYTHEMA [None]
  - THYROID FUNCTION TEST ABNORMAL [None]
  - DRUG RASH WITH EOSINOPHILIA AND SYSTEMIC SYMPTOMS [None]
  - RASH [None]
  - MYOCARDITIS [None]
  - THYROIDITIS [None]
  - HYPOTHYROIDISM [None]
  - VOMITING [None]
  - BLOOD CREATINE PHOSPHOKINASE INCREASED [None]
  - HEPATIC FUNCTION ABNORMAL [None]
  - PYREXIA [None]
  - CARDIOMEGALY [None]
